FAERS Safety Report 20783405 (Version 2)
Quarter: 2022Q2

REPORT INFORMATION
  Report Type: Spontaneous
  Country: US (occurrence: US)
  Receive Date: 20220504
  Receipt Date: 20220506
  Transmission Date: 20220721
  Serious: No
  Sender: FDA-Public Use
  Company Number: US-LUPIN PHARMACEUTICALS INC.-2022-06352

PATIENT
  Age: 34 Year
  Sex: Female

DRUGS (2)
  1. BETAMETHASONE DIPROPIONATE [Suspect]
     Active Substance: BETAMETHASONE DIPROPIONATE
     Indication: Dermatitis contact
     Dosage: UNK
     Route: 061
  2. PROTOPIC [Suspect]
     Active Substance: TACROLIMUS
     Indication: Dermatitis contact
     Dosage: UNK
     Route: 061

REACTIONS (1)
  - Drug ineffective [Unknown]
